FAERS Safety Report 23010817 (Version 4)
Quarter: 2023Q4

REPORT INFORMATION
  Report Type: Spontaneous
  Country: PL (occurrence: PL)
  Receive Date: 20230929
  Receipt Date: 20231221
  Transmission Date: 20240110
  Serious: Yes (Life-Threatening, Hospitalization, Other)
  Sender: FDA-Public Use
  Company Number: None

PATIENT
  Age: 16 Year
  Sex: Male
  Weight: 80 kg

DRUGS (3)
  1. SABRIL [Suspect]
     Active Substance: VIGABATRIN
     Indication: Partial seizures
     Dosage: 1000 MG, TID (THIS BATCH OF MEDICATION WAS DISCONTINUED (BECAUSE OF CONTAMINATION)
     Route: 048
     Dates: start: 20220905, end: 20230807
  2. SABRIL [Suspect]
     Active Substance: VIGABATRIN
     Indication: Epilepsy
     Dosage: 1000 MG, TID (AFTER DISCONTINUING THE FAULTY BATCH OF MEDICATION, ANOTHER BATCH WAS ADMINISTERED MAI
     Route: 048
  3. SABRIL [Suspect]
     Active Substance: VIGABATRIN
     Indication: Tuberous sclerosis complex
     Dosage: UNK
     Route: 065

REACTIONS (1)
  - Altered state of consciousness [Not Recovered/Not Resolved]
